FAERS Safety Report 19079020 (Version 1)
Quarter: 2021Q1

REPORT INFORMATION
  Report Type: Spontaneous
  Country: IN (occurrence: IN)
  Receive Date: 20210331
  Receipt Date: 20210331
  Transmission Date: 20210420
  Serious: Yes (Hospitalization, Other)
  Sender: FDA-Public Use
  Company Number: IN-BAXTER-2021BAX006155

PATIENT
  Age: 65 Year
  Sex: Female

DRUGS (1)
  1. TAMIN [PARACETAMOL] [Suspect]
     Active Substance: ACETAMINOPHEN
     Indication: PRODUCT USED FOR UNKNOWN INDICATION
     Route: 065

REACTIONS (3)
  - Fixed eruption [Recovered/Resolved]
  - Dermatitis bullous [Recovered/Resolved]
  - Rash maculo-papular [Recovered/Resolved]
